FAERS Safety Report 8859388 (Version 1)
Quarter: 2012Q4

REPORT INFORMATION
  Report Type: Spontaneous
  Country: FR (occurrence: None)
  Receive Date: 20121022
  Receipt Date: 20121022
  Transmission Date: 20130627
  Serious: Yes (Other)
  Sender: FDA-Public Use
  Company Number: 7167172

PATIENT
  Age: 36 Year
  Sex: Female

DRUGS (8)
  1. LEVOTHYROX [Suspect]
     Indication: DRUG USE FOR UNKNOWN INDICATION
     Route: 048
  2. DEPAKINE [Suspect]
     Indication: DRUG USE FOR UNKNOWN INDICATION
     Dates: end: 201106
  3. DEPAKINE [Suspect]
     Indication: DRUG USE FOR UNKNOWN INDICATION
  4. DEPAKINE [Suspect]
     Indication: DRUG USE FOR UNKNOWN INDICATION
  5. DEPAKINE [Suspect]
     Indication: DRUG USE FOR UNKNOWN INDICATION
  6. URBANYL [Suspect]
     Indication: DRUG USE FOR UNKNOWN INDICATION
     Dates: start: 201106, end: 201107
  7. URBANYL [Suspect]
     Indication: DRUG USE FOR UNKNOWN INDICATION
  8. SPECIAFOLDINE [Suspect]
     Indication: DRUG USE FOR UNKNOWN INDICATION

REACTIONS (4)
  - Pregnancy [None]
  - Maternal exposure during pregnancy [None]
  - Anxiety [None]
  - Abortion induced [None]
